FAERS Safety Report 4964038-8 (Version None)
Quarter: 2006Q1

REPORT INFORMATION
  Report Type: 
  Country: None (occurrence: None)
  Receive Date: 20060330
  Receipt Date: 20060316
  Transmission Date: 20060701
  Serious: Yes (Death)
  Sender: FDA-Public Use
  Company Number: 2006EN000093

PATIENT
  Age: 62 Year
  Sex: Male

DRUGS (2)
  1. ONCASPAR [Suspect]
     Indication: MULTIPLE MYELOMA
     Dosage: IV
     Route: 042
     Dates: end: 20060313
  2. METHOTREXATE [Concomitant]

REACTIONS (1)
  - DEATH [None]
